FAERS Safety Report 9760110 (Version 1)
Quarter: 2013Q4

REPORT INFORMATION
  Report Type: Spontaneous
  Country: US (occurrence: US)
  Receive Date: 20131216
  Receipt Date: 20131216
  Transmission Date: 20140711
  Serious: No
  Sender: FDA-Public Use
  Company Number: US-BIOGENIDEC-2013BI101612

PATIENT
  Sex: Female
  Weight: 97 kg

DRUGS (8)
  1. TECFIDERA [Suspect]
     Indication: PRODUCT USED FOR UNKNOWN INDICATION
     Route: 048
  2. GABAPENTIN [Concomitant]
  3. SIMVASTATIN [Concomitant]
  4. LEVOTHROID [Concomitant]
  5. CELEXA [Concomitant]
  6. VITAMIN D [Concomitant]
  7. CARBAMAZEPIN [Concomitant]
  8. WOMENS MULTI [Concomitant]

REACTIONS (4)
  - Nausea [Unknown]
  - Dyspepsia [Unknown]
  - Pruritus [Unknown]
  - Flushing [Unknown]
